FAERS Safety Report 23062144 (Version 2)
Quarter: 2023Q4

REPORT INFORMATION
  Report Type: Spontaneous
  Country: IE (occurrence: IE)
  Receive Date: 20231013
  Receipt Date: 20231018
  Transmission Date: 20240110
  Serious: Yes (Other)
  Sender: FDA-Public Use
  Company Number: None

PATIENT

DRUGS (7)
  1. ACARIZAX [Suspect]
     Active Substance: DERMATOPHAGOIDES FARINAE\DERMATOPHAGOIDES PTERONYSSINUS
     Indication: Mite allergy
     Dosage: 12 SQ-HDM
     Route: 060
     Dates: start: 20221018, end: 20221112
  2. ACARIZAX [Suspect]
     Active Substance: DERMATOPHAGOIDES FARINAE\DERMATOPHAGOIDES PTERONYSSINUS
     Indication: Rhinitis allergic
     Dosage: 12 SQ-HDM
     Route: 060
     Dates: start: 20221123
  3. LAMOTRIGINE [Concomitant]
     Active Substance: LAMOTRIGINE
     Dosage: 150 MILLIGRAM
  4. STAMARIL [Suspect]
     Active Substance: YELLOW FEVER VIRUS STRAIN 17D-204 LIVE ANTIGEN
     Indication: Immunisation
     Dosage: UNK
     Dates: start: 20221111, end: 20221111
  5. TYPHIM VI [Suspect]
     Active Substance: SALMONELLA TYPHI TY2 VI POLYSACCHARIDE ANTIGEN
     Indication: Immunisation
     Dosage: UNK
     Dates: start: 20221111, end: 20221111
  6. REVAXIS [Suspect]
     Active Substance: DIPHTHERIA AND TETANUS TOXOIDS AND POLIOVIRUS VACCINE ANTIGENS
     Indication: Immunisation
     Dosage: UNK
     Dates: start: 20221111, end: 20221111
  7. AVAXIM [Suspect]
     Active Substance: HEPATITIS A VACCINE, INACTIVATED
     Indication: Immunisation
     Dosage: UNK
     Dates: start: 20221111, end: 20221111

REACTIONS (5)
  - Odynophagia [Recovered/Resolved]
  - Chest pain [Recovered/Resolved]
  - Type I hypersensitivity [Recovered/Resolved]
  - Throat irritation [Recovered/Resolved]
  - Vaccine interaction [Unknown]

NARRATIVE: CASE EVENT DATE: 20221112
